FAERS Safety Report 19356743 (Version 1)
Quarter: 2021Q2

REPORT INFORMATION
  Report Type: Spontaneous
  Country: US (occurrence: US)
  Receive Date: 20210602
  Receipt Date: 20210602
  Transmission Date: 20210717
  Serious: Yes (Hospitalization)
  Sender: FDA-Public Use
  Company Number: None

PATIENT
  Age: 12 Year
  Sex: Female

DRUGS (1)
  1. ZARXIO [Suspect]
     Active Substance: FILGRASTIM-SNDZ
     Indication: NEUTROPENIA
     Dosage: ?          OTHER FREQUENCY:EVERY OTHER DAY;?
     Route: 058
     Dates: start: 20200212

REACTIONS (1)
  - Surgery [None]

NARRATIVE: CASE EVENT DATE: 20210517
